FAERS Safety Report 8373904-5 (Version None)
Quarter: 2012Q2

REPORT INFORMATION
  Report Type: 
  Country: None (occurrence: None)
  Receive Date: 20120521
  Receipt Date: 20120514
  Transmission Date: 20120825
  Serious: Yes (Other)
  Sender: FDA-Public Use
  Company Number: US-ROCHE-1040243

PATIENT
  Sex: Female
  Weight: 70.824 kg

DRUGS (1)
  1. ACCUTANE [Suspect]
     Indication: ACNE CYSTIC
     Dates: start: 20030301, end: 20031101

REACTIONS (3)
  - INJURY [None]
  - CHOLECYSTITIS [None]
  - DEPRESSION [None]
